FAERS Safety Report 4516276-6 (Version None)
Quarter: 2004Q4

REPORT INFORMATION
  Report Type: 
  Country: None (occurrence: None)
  Receive Date: 20041129
  Receipt Date: 20041109
  Transmission Date: 20050328
  Serious: Yes (Other)
  Sender: FDA-Public Use
  Company Number: WAES 0410USA02796

PATIENT
  Age: 95 Year
  Sex: Female

DRUGS (2)
  1. FOSAMAX [Suspect]
     Indication: SPINAL COMPRESSION FRACTURE
     Dosage: 15 MG/DAILY
     Route: 048
     Dates: start: 20031202, end: 20031212
  2. FORSENID [Concomitant]

REACTIONS (1)
  - DEPRESSED LEVEL OF CONSCIOUSNESS [None]
